FAERS Safety Report 6331231-1 (Version None)
Quarter: 2009Q3

REPORT INFORMATION
  Report Type: 
  Country: None (occurrence: None)
  Receive Date: 20090827
  Receipt Date: 20090814
  Transmission Date: 20100115
  Serious: Yes (Hospitalization)
  Sender: FDA-Public Use
  Company Number: KR-MERCK-0908KOR00022

PATIENT
  Age: 82 Year
  Sex: Female

DRUGS (2)
  1. HYZAAR [Suspect]
     Indication: HYPERTENSION
     Route: 048
     Dates: start: 20090101, end: 20090101
  2. HYZAAR [Suspect]
     Route: 048
     Dates: end: 20090101

REACTIONS (3)
  - DIZZINESS [None]
  - FRACTURE [None]
  - HYPONATRAEMIA [None]
